FAERS Safety Report 12269133 (Version 1)
Quarter: 2016Q2

REPORT INFORMATION
  Report Type: Spontaneous
  Country: DE (occurrence: DE)
  Receive Date: 20160414
  Receipt Date: 20160414
  Transmission Date: 20160815
  Serious: Yes (Hospitalization)
  Sender: FDA-Public Use
  Company Number: DE-ELI_LILLY_AND_COMPANY-DE201604001722

PATIENT
  Sex: Male

DRUGS (1)
  1. EFIENT [Suspect]
     Active Substance: PRASUGREL HYDROCHLORIDE
     Indication: STENT PLACEMENT
     Dosage: UNK, UNKNOWN
     Route: 065

REACTIONS (14)
  - Local swelling [Recovered/Resolved]
  - Arthralgia [Recovered/Resolved]
  - Nephrolithiasis [Recovered/Resolved]
  - Myalgia [Recovered/Resolved]
  - Swollen tongue [Recovered/Resolved]
  - Visual impairment [Recovered/Resolved]
  - Peripheral swelling [Recovered/Resolved]
  - Swelling face [Recovered/Resolved]
  - Gout [Recovered/Resolved]
  - Flatulence [Recovered/Resolved]
  - Chromaturia [Recovered/Resolved]
  - Urine odour abnormal [Recovered/Resolved]
  - Muscle strain [Recovered/Resolved]
  - Disturbance in attention [Recovering/Resolving]

NARRATIVE: CASE EVENT DATE: 2015
